FAERS Safety Report 7941425-7 (Version None)
Quarter: 2011Q4

REPORT INFORMATION
  Report Type: 
  Country: None (occurrence: None)
  Receive Date: 20111122
  Receipt Date: 20111115
  Transmission Date: 20120403
  Serious: Yes (Disabling)
  Sender: FDA-Public Use
  Company Number: OSCN-NO-0908S-0400

PATIENT
  Age: 38 Year
  Sex: Female
  Weight: 58 kg

DRUGS (13)
  1. FOLIC ACID [Concomitant]
  2. ERYTHROPOIETIN (NEORECORMON)(EPOETIN BETA) [Concomitant]
  3. IBUPROFEN (IPREN) (IBUPROFEN) [Concomitant]
  4. BUMETANIDE (BURINEX) (BUMETANIDE) [Concomitant]
  5. WARFARIN (MAREVAN)(WARFARIN SODIUM) [Concomitant]
  6. GADOLINIUM UNPECIFIED (GADOLINIUM) [Suspect]
     Indication: PAIN IN EXTREMITY
     Dosage: , SINGLE DOSE, INTRAVENOUS
     Route: 042
     Dates: start: 20060407, end: 20060407
  7. GADOLINIUM UNPECIFIED (GADOLINIUM) [Suspect]
     Indication: PARAESTHESIA
     Dosage: , SINGLE DOSE, INTRAVENOUS
     Route: 042
     Dates: start: 20060407, end: 20060407
  8. SIMVASTATIN [Concomitant]
  9. ASCORBIC ACID (C-VITAMIN)(ASCORBIC ACID) [Concomitant]
  10. ENALAPRIL (COROPIL)(ENALAPRIL) [Concomitant]
  11. TRAMADOL (MANDOLGIN) (TRAMADOL) [Concomitant]
  12. PHENOXYMETHYLPENICILLIN (VEPICOMBIN) (VEPICOMBIN /00197201/) [Concomitant]
  13. ESOMEPRAZOLE (NEXIUM) (ESOMEPRAZOLE MAGNESIUM) [Concomitant]

REACTIONS (1)
  - NEPHROGENIC SYSTEMIC FIBROSIS [None]
